FAERS Safety Report 25284720 (Version 3)
Quarter: 2025Q2

REPORT INFORMATION
  Report Type: Report from Study
  Country: ES (occurrence: ES)
  Receive Date: 20250508
  Receipt Date: 20250601
  Transmission Date: 20250716
  Serious: Yes (Hospitalization, Other)
  Sender: ABBVIE
  Company Number: ES-ABBVIE-6269342

PATIENT
  Age: 15 Year
  Sex: Male
  Weight: 45 kg

DRUGS (10)
  1. HUMIRA [Suspect]
     Active Substance: ADALIMUMAB
     Indication: Crohn^s disease
     Route: 058
     Dates: start: 20160517, end: 20161116
  2. HUMIRA [Suspect]
     Active Substance: ADALIMUMAB
     Route: 058
     Dates: start: 20191104, end: 20200804
  3. HUMIRA [Suspect]
     Active Substance: ADALIMUMAB
     Dosage: EVERY OTHER WEEK
     Route: 058
     Dates: start: 20211207, end: 20220620
  4. HUMIRA [Suspect]
     Active Substance: ADALIMUMAB
     Dosage: EOW
     Route: 058
     Dates: start: 20171117, end: 20191103
  5. HUMIRA [Suspect]
     Active Substance: ADALIMUMAB
     Dosage: EVERY OTHER WEEK
     Route: 058
     Dates: start: 20200805, end: 20211108
  6. HUMIRA [Suspect]
     Active Substance: ADALIMUMAB
     Route: 058
     Dates: start: 20211109, end: 20211123
  7. HUMIRA [Suspect]
     Active Substance: ADALIMUMAB
     Dosage: EVERY WEEK
     Route: 058
     Dates: start: 20220621
  8. LISDEXAMFETAMINE DIMESYLATE [Concomitant]
     Active Substance: LISDEXAMFETAMINE DIMESYLATE
     Indication: Attention deficit hyperactivity disorder
     Route: 048
     Dates: start: 20171016
  9. FLUOXETINE [Concomitant]
     Active Substance: FLUOXETINE HYDROCHLORIDE
     Indication: Depressed mood
     Route: 048
     Dates: start: 20181108
  10. QUETIAPINE FUMARATE [Concomitant]
     Active Substance: QUETIAPINE FUMARATE
     Indication: Depressed mood
     Route: 048
     Dates: start: 20210520

REACTIONS (1)
  - Autism spectrum disorder [Recovered/Resolved]

NARRATIVE: CASE EVENT DATE: 20220707
